FAERS Safety Report 6203579-2 (Version None)
Quarter: 2009Q2

REPORT INFORMATION
  Report Type: 
  Country: None (occurrence: None)
  Receive Date: 20090527
  Receipt Date: 20090525
  Transmission Date: 20091009
  Serious: Yes (Hospitalization)
  Sender: FDA-Public Use
  Company Number: FR-BRISTOL-MYERS SQUIBB COMPANY-14636708

PATIENT
  Age: 62 Year
  Sex: Female

DRUGS (2)
  1. APROVEL TABS 300 MG [Suspect]
     Dosage: DOSE DECREASED BY HALF FROM 13MAR2008.
     Dates: start: 20061201
  2. BUMEX [Suspect]
     Dosage: DOSE DECREASED BY HALF FROM 13MAR2008.
     Dates: start: 20080101

REACTIONS (5)
  - FALL [None]
  - HYPOTENSION [None]
  - LOSS OF CONSCIOUSNESS [None]
  - MALAISE [None]
  - VISION BLURRED [None]
